FAERS Safety Report 11880164 (Version 1)
Quarter: 2015Q4

REPORT INFORMATION
  Report Type: Spontaneous
  Country: US (occurrence: US)
  Receive Date: 20151230
  Receipt Date: 20151230
  Transmission Date: 20160305
  Serious: No
  Sender: FDA-Public Use
  Company Number: US-009507513-1512USA012616

PATIENT
  Sex: Female

DRUGS (2)
  1. LORATADINE. [Concomitant]
     Active Substance: LORATADINE
     Route: 048
  2. NUVARING [Suspect]
     Active Substance: ETHINYL ESTRADIOL\ETONOGESTREL
     Indication: CONTRACEPTION
     Dosage: UNK
     Route: 067
     Dates: start: 201401

REACTIONS (4)
  - Inappropriate schedule of drug administration [Unknown]
  - Vulvovaginal pain [Unknown]
  - Device breakage [Unknown]
  - Medication error [Unknown]

NARRATIVE: CASE EVENT DATE: 2015
